FAERS Safety Report 9631981 (Version 1)
Quarter: 2013Q4

REPORT INFORMATION
  Report Type: Spontaneous
  Country: US (occurrence: US)
  Receive Date: 20131018
  Receipt Date: 20131018
  Transmission Date: 20140711
  Serious: No
  Sender: FDA-Public Use
  Company Number: US-ASTELLAS-2013US008215

PATIENT
  Age: 51 Year
  Sex: Male

DRUGS (1)
  1. MYCAMINE [Suspect]
     Indication: PRODUCT USED FOR UNKNOWN INDICATION
     Dosage: ON FOR 4 DAYS AND OFF FOR 5 DAYS (TOTAL OF 14 INFUSIONS)
     Route: 042
     Dates: start: 20130520, end: 20130614

REACTIONS (2)
  - Therapeutic response unexpected [Unknown]
  - Headache [Recovered/Resolved]
